FAERS Safety Report 20235652 (Version 5)
Quarter: 2022Q1

REPORT INFORMATION
  Report Type: Report from Study
  Country: DE (occurrence: DE)
  Receive Date: 20211228
  Receipt Date: 20220324
  Transmission Date: 20220423
  Serious: Yes (Hospitalization, Other)
  Sender: FDA-Public Use
  Company Number: DE-TAKEDA-2021TUS081338

PATIENT
  Age: 66 Year
  Sex: Female

DRUGS (24)
  1. TEDUGLUTIDE [Suspect]
     Active Substance: TEDUGLUTIDE
     Indication: Short-bowel syndrome
     Dosage: 2.9 MILLIGRAM, QD
     Route: 065
     Dates: start: 20200730, end: 20200921
  2. TEDUGLUTIDE [Suspect]
     Active Substance: TEDUGLUTIDE
     Indication: Short-bowel syndrome
     Dosage: 2.9 MILLIGRAM, QD
     Route: 065
     Dates: start: 20200730, end: 20200921
  3. TEDUGLUTIDE [Suspect]
     Active Substance: TEDUGLUTIDE
     Indication: Short-bowel syndrome
     Dosage: 2.9 MILLIGRAM, QD
     Route: 065
     Dates: start: 20200730, end: 20200921
  4. TEDUGLUTIDE [Suspect]
     Active Substance: TEDUGLUTIDE
     Indication: Short-bowel syndrome
     Dosage: 2.9 MILLIGRAM, QD
     Route: 065
     Dates: start: 20200730, end: 20200921
  5. TEDUGLUTIDE [Suspect]
     Active Substance: TEDUGLUTIDE
     Dosage: UNK
     Route: 065
     Dates: start: 202009, end: 202102
  6. TEDUGLUTIDE [Suspect]
     Active Substance: TEDUGLUTIDE
     Dosage: UNK
     Route: 065
     Dates: start: 202009, end: 202102
  7. TEDUGLUTIDE [Suspect]
     Active Substance: TEDUGLUTIDE
     Dosage: UNK
     Route: 065
     Dates: start: 202009, end: 202102
  8. TEDUGLUTIDE [Suspect]
     Active Substance: TEDUGLUTIDE
     Dosage: UNK
     Route: 065
     Dates: start: 202009, end: 202102
  9. TEDUGLUTIDE [Suspect]
     Active Substance: TEDUGLUTIDE
     Dosage: 2.8 MILLIGRAM, 4/WEEK
     Route: 065
     Dates: start: 20210110
  10. TEDUGLUTIDE [Suspect]
     Active Substance: TEDUGLUTIDE
     Dosage: 2.8 MILLIGRAM, 4/WEEK
     Route: 065
     Dates: start: 20210110
  11. TEDUGLUTIDE [Suspect]
     Active Substance: TEDUGLUTIDE
     Dosage: 2.8 MILLIGRAM, 4/WEEK
     Route: 065
     Dates: start: 20210110
  12. TEDUGLUTIDE [Suspect]
     Active Substance: TEDUGLUTIDE
     Dosage: 2.8 MILLIGRAM, 4/WEEK
     Route: 065
     Dates: start: 20210110
  13. TEDUGLUTIDE [Suspect]
     Active Substance: TEDUGLUTIDE
     Dosage: 2.8 MILLIGRAM, QD
     Route: 065
     Dates: start: 20210509, end: 20210522
  14. TEDUGLUTIDE [Suspect]
     Active Substance: TEDUGLUTIDE
     Dosage: 2.8 MILLIGRAM, QD
     Route: 065
     Dates: start: 20210509, end: 20210522
  15. TEDUGLUTIDE [Suspect]
     Active Substance: TEDUGLUTIDE
     Dosage: 2.8 MILLIGRAM, QD
     Route: 065
     Dates: start: 20210509, end: 20210522
  16. TEDUGLUTIDE [Suspect]
     Active Substance: TEDUGLUTIDE
     Dosage: 2.8 MILLIGRAM, QD
     Route: 065
     Dates: start: 20210509, end: 20210522
  17. Colibiogen [Concomitant]
     Dosage: UNK UNK, QD
  18. REPHALYSIN [Concomitant]
     Dosage: UNK UNK, TID
  19. FOLIC ACID [Concomitant]
     Active Substance: FOLIC ACID
     Dosage: 800 MILLIGRAM, QD
     Route: 048
  20. HERBALS [Concomitant]
     Active Substance: HERBALS
     Dosage: 140 MILLIGRAM, BID
     Route: 048
  21. MIRTAZAPINE [Concomitant]
     Active Substance: MIRTAZAPINE
     Indication: Sleep disorder
     Dosage: 15 MILLIGRAM, QD
     Route: 048
     Dates: start: 202109
  22. Mucofalk [Concomitant]
     Indication: Short-bowel syndrome
     Dosage: 5 GRAM, TID
     Route: 048
     Dates: start: 202106
  23. OPII TINCTURA NORMATA [Concomitant]
     Indication: Short-bowel syndrome
     Dosage: 10 GTT DROPS, QID
     Route: 048
     Dates: start: 202106
  24. IMODIUM [Concomitant]
     Active Substance: LOPERAMIDE HYDROCHLORIDE
     Indication: Short-bowel syndrome
     Dosage: 2 MILLIGRAM
     Route: 060
     Dates: start: 202106

REACTIONS (8)
  - Rectal stenosis [Recovered/Resolved]
  - Gastrointestinal stoma complication [Recovered/Resolved]
  - Hypervitaminosis A [Recovered/Resolved]
  - C-reactive protein increased [Recovered/Resolved]
  - Hypervitaminosis [Recovered/Resolved]
  - Hypervitaminosis B12 [Recovered/Resolved]
  - Sleep disorder [Recovered/Resolved]
  - Proctalgia [Recovered/Resolved]

NARRATIVE: CASE EVENT DATE: 20210501
